FAERS Safety Report 4783216-4 (Version None)
Quarter: 2005Q3

REPORT INFORMATION
  Report Type: 
  Country: None (occurrence: None)
  Receive Date: 20050914
  Receipt Date: 20050621
  Transmission Date: 20060218
  Serious: Yes (Hospitalization)
  Sender: FDA-Public Use
  Company Number: 163-20785-05060309

PATIENT
  Age: 77 Year
  Sex: Female
  Weight: 83.9154 kg

DRUGS (8)
  1. THALOMID [Suspect]
     Indication: ACUTE MYELOID LEUKAEMIA
     Dosage: 50 MG, QHS, ORAL
     Route: 048
     Dates: start: 20050101, end: 20050620
  2. VIDAZA [Suspect]
     Indication: ACUTE MYELOID LEUKAEMIA
     Dosage: 75MG/M2, SUBCUTANEOUS
     Route: 058
     Dates: start: 20050523, end: 20050527
  3. VIDAZA [Suspect]
     Indication: ACUTE MYELOID LEUKAEMIA
     Dosage: 75MG/M2, SUBCUTANEOUS
     Route: 058
     Dates: start: 20050620, end: 20050622
  4. DIGOXIN [Concomitant]
  5. LEVOTHROID [Concomitant]
  6. CELEBREX [Concomitant]
  7. UNIRETIC (PRIMOX PLUS) [Concomitant]
  8. FLOVENT [Concomitant]

REACTIONS (9)
  - ABDOMINAL PAIN [None]
  - DEEP VEIN THROMBOSIS [None]
  - DIARRHOEA [None]
  - DIFFICULTY IN WALKING [None]
  - FEBRILE NEUTROPENIA [None]
  - GIARDIASIS [None]
  - INFECTION [None]
  - MUSCLE SPASMS [None]
  - OEDEMA PERIPHERAL [None]
